FAERS Safety Report 4421907-5 (Version None)
Quarter: 2004Q3

REPORT INFORMATION
  Report Type: 
  Country: None (occurrence: None)
  Receive Date: 20040805
  Receipt Date: 20040723
  Transmission Date: 20050211
  Serious: Yes (Disabling, Other)
  Sender: FDA-Public Use
  Company Number: 2004036523

PATIENT
  Age: 62 Year
  Sex: Female
  Weight: 79.3795 kg

DRUGS (7)
  1. NEURONTIN [Suspect]
     Indication: DIABETIC NEUROPATHY
     Dosage: 3200 MG (800 MG, 4 IN 1 D), ORAL
     Route: 048
     Dates: start: 20010917
  2. NEURONTIN [Suspect]
     Indication: FIBROMYALGIA
     Dosage: 3200 MG (800 MG, 4 IN 1 D), ORAL
     Route: 048
     Dates: start: 20010917
  3. AMITRIPTYLINE HCL [Concomitant]
  4. PIOGLITAZONE HCL [Concomitant]
  5. GLIBOMET (GLIBENCLAMIDE, METFORMIN HYDROCHLORIDE) [Concomitant]
  6. SIMVASTATIN [Concomitant]
  7. THYROID TAB [Concomitant]

REACTIONS (4)
  - ABASIA [None]
  - DISEASE RECURRENCE [None]
  - MYALGIA [None]
  - PAIN [None]
